FAERS Safety Report 10277249 (Version 3)
Quarter: 2014Q3

REPORT INFORMATION
  Report Type: Report from Study
  Country: BE (occurrence: BE)
  Receive Date: 20140703
  Receipt Date: 20140905
  Transmission Date: 20150326
  Serious: Yes (Death, Hospitalization)
  Sender: FDA-Public Use
  Company Number: BE-BIOGENIDEC-2014BI062020

PATIENT
  Age: 24 Year
  Sex: Male

DRUGS (5)
  1. FINGOLIMOD [Concomitant]
     Active Substance: FINGOLIMOD
     Indication: MULTIPLE SCLEROSIS
     Route: 048
     Dates: start: 20131126, end: 20140131
  2. ESCITALOPRAM [Concomitant]
     Active Substance: ESCITALOPRAM OXALATE
     Indication: DEPRESSION
     Route: 048
     Dates: start: 20110225
  3. 4-AMINOPYRIDINE [Concomitant]
     Active Substance: DALFAMPRIDINE
     Indication: FATIGUE
     Route: 048
     Dates: start: 20120405
  4. XANAX [Concomitant]
     Active Substance: ALPRAZOLAM
     Indication: ANXIETY
     Route: 048
  5. TYSABRI [Suspect]
     Active Substance: NATALIZUMAB
     Indication: RELAPSING-REMITTING MULTIPLE SCLEROSIS
     Route: 042
     Dates: start: 20110228, end: 20131023

REACTIONS (2)
  - Immune reconstitution inflammatory syndrome [Fatal]
  - Multiple sclerosis relapse [Fatal]

NARRATIVE: CASE EVENT DATE: 20140125
